FAERS Safety Report 4947040-1 (Version None)
Quarter: 2006Q1

REPORT INFORMATION
  Report Type: 
  Country: None (occurrence: None)
  Receive Date: 20060317
  Receipt Date: 20051220
  Transmission Date: 20060701
  Serious: Yes (Death, Hospitalization)
  Sender: FDA-Public Use
  Company Number: FR-BRISTOL-MYERS SQUIBB COMPANY-13231170

PATIENT
  Age: 52 Year
  Sex: Male

DRUGS (11)
  1. ENDOXAN [Suspect]
     Indication: DRUG USE FOR UNKNOWN INDICATION
     Route: 042
     Dates: start: 20031224, end: 20031224
  2. ADRIBLASTINE [Suspect]
     Indication: DRUG USE FOR UNKNOWN INDICATION
     Route: 042
     Dates: start: 20031224, end: 20031224
  3. ONCOVIN [Suspect]
     Indication: DRUG USE FOR UNKNOWN INDICATION
     Route: 042
     Dates: start: 20030801, end: 20040126
  4. HALDOL [Concomitant]
  5. TRANXENE [Concomitant]
  6. PARKINANE [Concomitant]
  7. OMEPRAZOLE [Concomitant]
  8. SOLUPRED [Concomitant]
  9. TOPALGIC [Concomitant]
  10. SPASFON [Concomitant]
  11. TRIHEXYPHENIDYL HCL [Concomitant]

REACTIONS (4)
  - FEBRILE NEUTROPENIA [None]
  - LUNG DISORDER [None]
  - MALIGNANT NEOPLASM PROGRESSION [None]
  - SEPSIS [None]
